FAERS Safety Report 24650949 (Version 1)
Quarter: 2024Q4

REPORT INFORMATION
  Report Type: Report from Study
  Country: US (occurrence: US)
  Receive Date: 20241122
  Receipt Date: 20241122
  Transmission Date: 20250114
  Serious: Yes (Hospitalization)
  Sender: ABBVIE
  Company Number: US-ABBVIE-5966492

PATIENT
  Age: 84 Year
  Sex: Male
  Weight: 62.1 kg

DRUGS (1)
  1. IMBRUVICA [Suspect]
     Active Substance: IBRUTINIB
     Indication: Chronic lymphocytic leukaemia
     Route: 048
     Dates: start: 202408

REACTIONS (5)
  - Blood glucose increased [Recovering/Resolving]
  - Feeling cold [Unknown]
  - Hunger [Unknown]
  - Memory impairment [Unknown]
  - Dry skin [Unknown]

NARRATIVE: CASE EVENT DATE: 20240101
